FAERS Safety Report 8579104-8 (Version None)
Quarter: 2012Q3

REPORT INFORMATION
  Report Type: 
  Country: None (occurrence: None)
  Receive Date: 20120808
  Receipt Date: 20120803
  Transmission Date: 20120928
  Serious: Yes (Other)
  Sender: FDA-Public Use
  Company Number: US-PFIZER INC-2012189400

PATIENT
  Age: 85 Year
  Sex: Female
  Weight: 49.887 kg

DRUGS (2)
  1. RAMIPRIL [Concomitant]
     Indication: BLOOD PRESSURE ABNORMAL
     Dosage: 2.5 MG, DAILY
     Route: 048
     Dates: start: 20100101
  2. FLECTOR [Suspect]
     Indication: INFLAMMATION
     Dosage: UNK
     Dates: end: 20120803

REACTIONS (4)
  - RHINORRHOEA [None]
  - OROPHARYNGEAL PAIN [None]
  - DYSPHAGIA [None]
  - COUGH [None]
